FAERS Safety Report 10489559 (Version 1)
Quarter: 2014Q4

REPORT INFORMATION
  Report Type: Spontaneous
  Country: BR (occurrence: BR)
  Receive Date: 20141002
  Receipt Date: 20141002
  Transmission Date: 20150528
  Serious: Yes (Disabling)
  Sender: FDA-Public Use
  Company Number: BR-ASTRAZENECA-2014SE72484

PATIENT
  Age: 2644 Week
  Sex: Female
  Weight: 99 kg

DRUGS (2)
  1. SEROQUEL [Suspect]
     Active Substance: QUETIAPINE FUMARATE
     Indication: DEPRESSION
     Route: 048
     Dates: start: 2007
  2. ASPIRINA PREVENT [Concomitant]
     Active Substance: ASPIRIN
     Indication: CORONARY ARTERY OCCLUSION
     Dosage: DAILY
     Route: 048

REACTIONS (5)
  - Joint dislocation [Recovering/Resolving]
  - Ligament sprain [Recovering/Resolving]
  - Road traffic accident [Recovered/Resolved]
  - Joint dislocation [Recovered/Resolved]
  - Bone marrow disorder [Not Recovered/Not Resolved]

NARRATIVE: CASE EVENT DATE: 20140822
